FAERS Safety Report 8816614 (Version 1)
Quarter: 2012Q4

REPORT INFORMATION
  Report Type: Spontaneous
  Country: US (occurrence: None)
  Receive Date: 20121001
  Receipt Date: 20121001
  Transmission Date: 20130627
  Serious: No
  Sender: FDA-Public Use
  Company Number: None

PATIENT
  Age: 59 Year
  Sex: Female

DRUGS (1)
  1. COPAXONE [Suspect]
     Dosage: 20 MG DAILY SUBQ
     Route: 058
     Dates: start: 20111117, end: 20120925

REACTIONS (3)
  - Hypersensitivity [None]
  - Back pain [None]
  - Loss of consciousness [None]
